FAERS Safety Report 13823633 (Version 1)
Quarter: 2017Q3

REPORT INFORMATION
  Report Type: Spontaneous
  Country: LV (occurrence: LV)
  Receive Date: 20170802
  Receipt Date: 20170802
  Transmission Date: 20171127
  Serious: Yes (Life-Threatening, Hospitalization)
  Sender: FDA-Public Use
  Company Number: LV-ROCHE-1970854

PATIENT
  Age: 69 Year
  Sex: Female

DRUGS (1)
  1. ROACTEMRA [Suspect]
     Active Substance: TOCILIZUMAB
     Indication: RHEUMATOID ARTHRITIS
     Dosage: 162 MG SC INJECTIONS 1 TIME PER WEEK
     Route: 058
     Dates: start: 201603, end: 20170301

REACTIONS (1)
  - Rectal perforation [Recovering/Resolving]

NARRATIVE: CASE EVENT DATE: 20170301
